FAERS Safety Report 8902907 (Version 3)
Quarter: 2012Q4

REPORT INFORMATION
  Report Type: Report from Study
  Country: FR (occurrence: FR)
  Receive Date: 20121112
  Receipt Date: 20121203
  Transmission Date: 20130627
  Serious: Yes (Hospitalization)
  Sender: FDA-Public Use
  Company Number: FR-PFIZER INC-2012272606

PATIENT
  Age: 53 Year
  Sex: Male
  Weight: 64 kg

DRUGS (1)
  1. SUTENT [Suspect]
     Indication: RENAL CANCER METASTATIC
     Dosage: 50 mg (frequency unspecified)
     Route: 048
     Dates: start: 20110113

REACTIONS (1)
  - Small intestinal obstruction [Unknown]
